FAERS Safety Report 4711776-8 (Version None)
Quarter: 2005Q3

REPORT INFORMATION
  Report Type: 
  Country: None (occurrence: None)
  Receive Date: 20050629
  Receipt Date: 20050527
  Transmission Date: 20060218
  Serious: No
  Sender: FDA-Public Use
  Company Number: 05P-163-0301789-00

PATIENT
  Age: 57 Year
  Sex: Female
  Weight: 83.9154 kg

DRUGS (4)
  1. HUMIRA [Suspect]
     Indication: RHEUMATOID ARTHRITIS
     Dosage: 40 MG, 1 IN 2 WK, SUBCUTANEOUS
     Route: 058
     Dates: start: 20040501
  2. LEFLUNOMIDE [Concomitant]
  3. HYDROXYCHLOROQUINE PHOSPHATE [Concomitant]
  4. PHTHALYLSULFATHIAZOLE [Concomitant]

REACTIONS (3)
  - DIZZINESS [None]
  - HYPERHIDROSIS [None]
  - PARANASAL SINUS HYPERSECRETION [None]
